FAERS Safety Report 25974469 (Version 1)
Quarter: 2025Q4

REPORT INFORMATION
  Report Type: Report from Study
  Country: US (occurrence: US)
  Receive Date: 20251029
  Receipt Date: 20251029
  Transmission Date: 20260118
  Serious: Yes (Hospitalization)
  Sender: EISAI
  Company Number: US-Eisai-EC-2025-198831

PATIENT
  Age: 67 Year
  Sex: Female
  Weight: 86.1 kg

DRUGS (20)
  1. LENVIMA [Suspect]
     Active Substance: LENVATINIB
     Indication: Endometrial cancer
     Route: 048
     Dates: start: 20250129, end: 20250206
  2. LENVIMA [Suspect]
     Active Substance: LENVATINIB
     Route: 048
     Dates: start: 20250208, end: 202504
  3. LENVIMA [Suspect]
     Active Substance: LENVATINIB
     Route: 048
     Dates: start: 202504, end: 2025
  4. LENVIMA [Suspect]
     Active Substance: LENVATINIB
     Route: 048
     Dates: start: 202510
  5. KEYTRUDA [Suspect]
     Active Substance: PEMBROLIZUMAB
     Indication: Endometrial cancer
     Dosage: DOSE AND FREQUENCY UNKNOWN
     Route: 042
  6. METFORMIN [Suspect]
     Active Substance: METFORMIN HYDROCHLORIDE
     Indication: Diabetes mellitus
     Dosage: DOSE AND FREQUENCY UNKNOWN
  7. MAGNESIUM [Concomitant]
     Active Substance: MAGNESIUM
     Dosage: DOSE AND FREQUENCY UNKNOWN
  8. VALTREX [Concomitant]
     Active Substance: VALACYCLOVIR HYDROCHLORIDE
     Dosage: DOSE AND FREQUENCY UNKNOWN
  9. VITAMIN B COMPLEX [Concomitant]
     Active Substance: CYANOCOBALAMIN\DEXPANTHENOL\NIACINAMIDE\PYRIDOXINE HYDROCHLORIDE\RIBOFLAVIN 5^-PHOSPHATE SODIUM\THIA
     Dosage: DOSE AND FREQUENCY UNKNOWN
  10. VITAMIN D3 [Concomitant]
     Active Substance: CHOLECALCIFEROL
     Dosage: DOSE AND FREQUENCY UNKNOWN
  11. JARDIANCE [Concomitant]
     Active Substance: EMPAGLIFLOZIN
     Dosage: DOSE AND FREQUENCY UNKNOWN
  12. SPIRONOLACTONE [Concomitant]
     Active Substance: SPIRONOLACTONE
     Dosage: DOSE AND FREQUENCY UNKNOWN
  13. LEVOTHYROXINE SODIUM [Concomitant]
     Active Substance: LEVOTHYROXINE SODIUM
     Dosage: DOSE AND FREQUENCY UNKNOWN
  14. TORSEMIDE [Concomitant]
     Active Substance: TORSEMIDE
     Dosage: DOSE AND FREQUENCY UNKNOWN
  15. VALACYCLOVIR [Concomitant]
     Active Substance: VALACYCLOVIR HYDROCHLORIDE
     Dosage: DOSE AND FREQUENCY UNKNOWN
  16. EZETIMIBE\SIMVASTATIN [Concomitant]
     Active Substance: EZETIMIBE\SIMVASTATIN
     Dosage: DOSE AND FREQUENCY UNKNOWN
  17. AMLODIPINE BESYLATE [Concomitant]
     Active Substance: AMLODIPINE BESYLATE
     Dosage: DOSE AND FREQUENCY UNKNOWN
  18. VALSARTAN [Concomitant]
     Active Substance: VALSARTAN
     Dosage: DOSE AND FREQUENCY UNKNOWN
  19. PYRIDOXINE [Concomitant]
     Active Substance: PYRIDOXINE
     Dosage: DOSE AND FREQUENCY UNKNOWN
  20. JANUVIA [Concomitant]
     Active Substance: SITAGLIPTIN PHOSPHATE
     Dosage: DOSE AND FREQUENCY UNKNOWN

REACTIONS (7)
  - Dehydration [Not Recovered/Not Resolved]
  - Arthralgia [Not Recovered/Not Resolved]
  - Diarrhoea [Not Recovered/Not Resolved]
  - Gastrooesophageal reflux disease [Not Recovered/Not Resolved]
  - Peripheral swelling [Not Recovered/Not Resolved]
  - Vomiting [Not Recovered/Not Resolved]
  - Oral herpes [Not Recovered/Not Resolved]

NARRATIVE: CASE EVENT DATE: 20250101
